FAERS Safety Report 4412569-1 (Version None)
Quarter: 2004Q2

REPORT INFORMATION
  Report Type: 
  Country: None (occurrence: None)
  Receive Date: 20040630
  Receipt Date: 20040318
  Transmission Date: 20050107
  Serious: No
  Sender: FDA-Public Use
  Company Number: 04P-163-0252550-00

PATIENT
  Age: 73 Year
  Sex: Female
  Weight: 60.3284 kg

DRUGS (15)
  1. HUMIRA [Suspect]
     Indication: RHEUMATOID ARTHRITIS
     Dosage: 40 MG, 1 IN 2 WK, SUBCUTANEOUS
     Route: 058
     Dates: start: 20040115
  2. METHOTREXATE [Concomitant]
  3. RISEDRONATE SODIUM [Concomitant]
  4. FOLIC ACID [Concomitant]
  5. PREDNISONE [Concomitant]
  6. ESOMEPRAZOLE [Concomitant]
  7. VERAPAMIL HYDROCHLORIDE [Concomitant]
  8. ALPRAZOLAM [Concomitant]
  9. CALCIUM [Concomitant]
  10. CENTRUM [Concomitant]
  11. ASCORBIC ACID [Concomitant]
  12. TOCOPHEROL CONCENTRATE CAP [Concomitant]
  13. VICODIN [Concomitant]
  14. ASPIRIN [Concomitant]
  15. CYANOCOBALAMIN [Concomitant]

REACTIONS (3)
  - CYSTITIS [None]
  - HAEMATURIA [None]
  - RASH [None]
